FAERS Safety Report 8798517 (Version 1)
Quarter: 2012Q4

REPORT INFORMATION
  Report Type: 
  Country: GB (occurrence: GB)
  Receive Date: 20120920
  Receipt Date: 20120920
  Transmission Date: 20130627
  Serious: Yes (Life-Threatening, Hospitalization)
  Sender: FDA-Public Use
  Company Number: GB-ROCHE-1126976

PATIENT
  Age: 63 Year
  Sex: Female
  Weight: 73.9 kg

DRUGS (3)
  1. RITUXIMAB [Suspect]
     Indication: RHEUMATOID ARTHRITIS
     Route: 042
     Dates: start: 20111124, end: 20111208
  2. CO-CODAMOL [Concomitant]
  3. DICLOFENAC [Concomitant]

REACTIONS (2)
  - Liver function test abnormal [Unknown]
  - Renal neoplasm [Not Recovered/Not Resolved]
